FAERS Safety Report 6867261-0 (Version None)
Quarter: 2010Q3

REPORT INFORMATION
  Report Type: 
  Country: None (occurrence: None)
  Receive Date: 20100722
  Receipt Date: 20100709
  Transmission Date: 20110219
  Serious: Yes (Death, Other)
  Sender: FDA-Public Use
  Company Number: SV-ELI_LILLY_AND_COMPANY-SV201007002829

PATIENT
  Age: 23 Year
  Sex: Female

DRUGS (4)
  1. OLANZAPINE [Suspect]
     Indication: MAJOR DEPRESSION
     Dosage: 10 MG, DAILY (1/D)
     Route: 030
     Dates: start: 20100501
  2. OLANZAPINE [Suspect]
     Dosage: 10 MG, DAILY (1/D)
     Route: 048
  3. PAROXETINE HCL [Concomitant]
     Indication: MAJOR DEPRESSION
     Dosage: 20 MG, DAILY (1/D)
     Route: 065
     Dates: end: 20100601
  4. EFFEXOR [Concomitant]
     Indication: MAJOR DEPRESSION
     Dosage: UNK, UNKNOWN
     Route: 065
     Dates: start: 20100628

REACTIONS (2)
  - COMPLETED SUICIDE [None]
  - OFF LABEL USE [None]
